FAERS Safety Report 11731678 (Version 1)
Quarter: 2015Q4

REPORT INFORMATION
  Report Type: Spontaneous
  Country: FR (occurrence: FR)
  Receive Date: 20151112
  Receipt Date: 20151112
  Transmission Date: 20160304
  Serious: Yes (Death, Hospitalization)
  Sender: FDA-Public Use
  Company Number: FR-PFIZER INC-2015378204

PATIENT
  Age: 71 Year
  Sex: Male

DRUGS (23)
  1. OMEPRAZOLE. [Suspect]
     Active Substance: OMEPRAZOLE
     Dosage: 20 MG, DAILY
     Route: 048
  2. VERAPAMIL HYDROCHLORIDE. [Suspect]
     Active Substance: VERAPAMIL HYDROCHLORIDE
     Dosage: 240 MG, UNK
  3. POLYETHYLENE GLYCOL [Suspect]
     Active Substance: POLYETHYLENE GLYCOLS
     Dosage: 2 DF, DAILY
     Route: 065
  4. SALMETEROL XINAFOATE [Suspect]
     Active Substance: SALMETEROL XINAFOATE
     Dosage: 1 DF, 2X/DAY
     Route: 045
  5. FUROSEMIDE. [Suspect]
     Active Substance: FUROSEMIDE
     Dosage: 40 MG, DAILY
     Route: 048
  6. NITROGLYCERINE [Suspect]
     Active Substance: NITROGLYCERIN
     Dosage: UNK
     Route: 065
  7. PREDNAZOLINE [Concomitant]
     Active Substance: PREDNAZOLINE
     Dosage: UNK
  8. CELEBREX [Suspect]
     Active Substance: CELECOXIB
     Dosage: UNK
     Route: 065
  9. TRIHEXYPHENIDYL [Suspect]
     Active Substance: TRIHEXYPHENIDYL
     Dosage: 1 DF, DAILY
     Route: 048
  10. MIANSERIN HYDROCHLORIDE [Suspect]
     Active Substance: MIANSERIN HYDROCHLORIDE
     Dosage: 60 MG, DAILY
     Route: 048
  11. VENTOLIN [Suspect]
     Active Substance: ALBUTEROL SULFATE
     Dosage: UNK
     Route: 045
  12. DIACEREIN [Suspect]
     Active Substance: DIACEREIN
     Dosage: 50 MG, 2X/DAY
     Route: 048
  13. URBANYL [Suspect]
     Active Substance: CLOBAZAM
     Dosage: 10 MG, 3X/DAY
     Route: 048
  14. PIPAMPERONE [Suspect]
     Active Substance: PIPAMPERONE
     Dosage: 20 MG, DAILY
     Route: 048
  15. PROPRANOLOL [Suspect]
     Active Substance: PROPRANOLOL\PROPRANOLOL HYDROCHLORIDE
     Dosage: 20 MG, DAILY
     Route: 048
  16. CLONAZEPAM. [Suspect]
     Active Substance: CLONAZEPAM
     Dosage: 4 MG, DAILY
     Route: 048
  17. NITROGLYCERINE [Suspect]
     Active Substance: NITROGLYCERIN
     Dosage: 10 MG, DAILY
     Route: 048
  18. OXYGEN. [Concomitant]
     Active Substance: OXYGEN
     Dosage: UNK
  19. ALTACE [Suspect]
     Active Substance: RAMIPRIL
     Dosage: 5 MG, DAILY
     Route: 048
  20. ACETYLSALICYLATE LYSINE [Suspect]
     Active Substance: ASPIRIN DL-LYSINE
     Dosage: 20 MG, DAILY
     Route: 048
  21. ZOPICLONE [Suspect]
     Active Substance: ZOPICLONE
     Dosage: 15 MG, DAILY
     Route: 048
  22. PARACETAMOL [Suspect]
     Active Substance: ACETAMINOPHEN
     Dosage: 1000 MG, 2X/DAY
     Route: 048
  23. ZOCOR [Suspect]
     Active Substance: SIMVASTATIN
     Dosage: 20 MG, DAILY
     Route: 048

REACTIONS (5)
  - Respiratory failure [Fatal]
  - Cerebral artery thrombosis [Fatal]
  - Nausea [Fatal]
  - Ischaemic stroke [Fatal]
  - Respiratory distress [Fatal]
